FAERS Safety Report 10514502 (Version 2)
Quarter: 2014Q4

REPORT INFORMATION
  Report Type: Report from Study
  Country: US (occurrence: US)
  Receive Date: 20141013
  Receipt Date: 20141013
  Transmission Date: 20150528
  Serious: Yes (Other)
  Sender: FDA-Public Use
  Company Number: US-BAYER-2014-045078

PATIENT
  Age: 68 Year
  Sex: Male

DRUGS (4)
  1. COMPAZINE [Concomitant]
     Active Substance: PROCHLORPERAZINE MALEATE
  2. LACTULOSE. [Concomitant]
     Active Substance: LACTULOSE
     Indication: PRURITUS
  3. NEXAVAR [Suspect]
     Active Substance: SORAFENIB
     Indication: HEPATOCELLULAR CARCINOMA
     Dosage: DOSE REGIMEN: 4 X 200 MG
     Route: 048
     Dates: start: 20130923, end: 20140321
  4. ATARAX [HYDROXYZINE] [Concomitant]

REACTIONS (6)
  - Hepatocellular carcinoma [None]
  - Transaminases increased [None]
  - Atrial fibrillation [None]
  - Gastritis haemorrhagic [None]
  - Anaemia [None]
  - Hyperbilirubinaemia [None]

NARRATIVE: CASE EVENT DATE: 20140210
